FAERS Safety Report 8624470-8 (Version None)
Quarter: 2012Q3

REPORT INFORMATION
  Report Type: 
  Country: None (occurrence: None)
  Receive Date: 20120827
  Receipt Date: 20120817
  Transmission Date: 20120928
  Serious: Yes (Hospitalization)
  Sender: FDA-Public Use
  Company Number: US-ASTRAZENECA-2009UW13906

PATIENT
  Age: 60 Year
  Sex: Male
  Weight: 88.5 kg

DRUGS (9)
  1. SEROQUEL [Suspect]
     Route: 048
  2. SEROQUEL [Suspect]
     Route: 048
     Dates: start: 20090101
  3. SIMVASTATIN [Concomitant]
  4. TEGRETOL [Concomitant]
  5. ANTIDEPRESSANTS [Concomitant]
  6. BENICAR [Concomitant]
  7. CHOLESTEROL DRUG [Concomitant]
  8. BLOOD PRESSURE MEDICINE [Concomitant]
  9. SEROQUEL [Suspect]
     Indication: BIPOLAR DISORDER
     Route: 048
     Dates: start: 20040101, end: 20090101

REACTIONS (5)
  - DRUG EFFECT DECREASED [None]
  - DIZZINESS [None]
  - ADVERSE EVENT [None]
  - INSOMNIA [None]
  - DRUG DOSE OMISSION [None]
